FAERS Safety Report 7913544-2 (Version None)
Quarter: 2011Q4

REPORT INFORMATION
  Report Type: 
  Country: None (occurrence: None)
  Receive Date: 20111115
  Receipt Date: 20111102
  Transmission Date: 20120403
  Serious: Yes (Congenital Anomaly)
  Sender: FDA-Public Use
  Company Number: US-JNJFOC-20080805683

PATIENT
  Sex: Male
  Weight: 2.59 kg

DRUGS (3)
  1. TOPAMAX [Suspect]
     Indication: MATERNAL EXPOSURE DURING PREGNANCY
     Route: 064
  2. LAMICTAL [Suspect]
     Dates: start: 20040404
  3. LAMICTAL [Suspect]
     Indication: MATERNAL EXPOSURE DURING PREGNANCY
     Dates: end: 20040403

REACTIONS (3)
  - CHORDEE [None]
  - VENTRICULAR SEPTAL DEFECT [None]
  - ATRIAL SEPTAL DEFECT [None]
